APPROVED DRUG PRODUCT: METOPROLOL SUCCINATE
Active Ingredient: METOPROLOL SUCCINATE
Strength: EQ 100MG TARTRATE
Dosage Form/Route: TABLET, EXTENDED RELEASE;ORAL
Application: A216509 | Product #003
Applicant: GRANULES INDIA LTD
Approved: Aug 7, 2023 | RLD: No | RS: No | Type: DISCN